FAERS Safety Report 13883544 (Version 1)
Quarter: 2017Q3

REPORT INFORMATION
  Report Type: Report from Study
  Country: US (occurrence: US)
  Receive Date: 20170819
  Receipt Date: 20170819
  Transmission Date: 20171127
  Serious: Yes (Other)
  Sender: FDA-Public Use
  Company Number: US-ROCHE-1947212

PATIENT

DRUGS (2)
  1. MYCOPHENOLATE MOFETIL. [Suspect]
     Active Substance: MYCOPHENOLATE MOFETIL
     Indication: PROPHYLAXIS AGAINST TRANSPLANT REJECTION
     Dosage: THE MEAN ORAL MMF MAINTENANCE DOSE WAS 1.65 PLUS OR MINUS 0.5 G/D.
     Route: 048
  2. TACROLIMUS. [Suspect]
     Active Substance: TACROLIMUS
     Indication: PROPHYLAXIS AGAINST TRANSPLANT REJECTION
     Dosage: MEAN ORAL FK MAINTENANCE DOSE WAS 12.7 +/- 6 MG/D, WITH A MEAN 12-HOUR FK TROUGH LEVEL OF 13.1 +/- 4
     Route: 048

REACTIONS (6)
  - Gastrointestinal toxicity [Unknown]
  - Post transplant lymphoproliferative disorder [Unknown]
  - Sepsis [Unknown]
  - Infection [Unknown]
  - Cytomegalovirus infection [Unknown]
  - Renal transplant failure [Unknown]
